FAERS Safety Report 22096908 (Version 4)
Quarter: 2024Q1

REPORT INFORMATION
  Report Type: Spontaneous
  Country: US (occurrence: US)
  Receive Date: 20230315
  Receipt Date: 20240109
  Transmission Date: 20240410
  Serious: No
  Sender: FDA-Public Use
  Company Number: US-BRISTOL-MYERS SQUIBB COMPANY-2023-037375

PATIENT
  Age: 37 Year
  Sex: Female

DRUGS (2)
  1. ORENCIA [Suspect]
     Active Substance: ABATACEPT
     Indication: Rheumatoid arthritis
     Route: 058
     Dates: start: 202301
  2. ORENCIA [Suspect]
     Active Substance: ABATACEPT
     Route: 058
     Dates: start: 202301

REACTIONS (12)
  - Injection site pain [Unknown]
  - Poor quality sleep [Unknown]
  - Hyperhidrosis [Unknown]
  - Fatigue [Unknown]
  - General physical health deterioration [Unknown]
  - Joint swelling [Unknown]
  - Nausea [Unknown]
  - Flushing [Unknown]
  - Ocular hyperaemia [Unknown]
  - Injection site bruising [Unknown]
  - Injection site swelling [Unknown]
  - Arthralgia [Unknown]
